FAERS Safety Report 6361258-5 (Version None)
Quarter: 2009Q3

REPORT INFORMATION
  Report Type: 
  Country: None (occurrence: None)
  Receive Date: 20090918
  Receipt Date: 20090909
  Transmission Date: 20100115
  Serious: Yes (Death, Life-Threatening, Hospitalization)
  Sender: FDA-Public Use
  Company Number: BE-JNJFOC-20090709085

PATIENT
  Sex: Male
  Weight: 70 kg

DRUGS (4)
  1. REMICADE [Suspect]
     Route: 042
     Dates: start: 20090121, end: 20090506
  2. REMICADE [Suspect]
     Route: 042
     Dates: start: 20090121, end: 20090506
  3. REMICADE [Suspect]
     Indication: CROHN'S DISEASE
     Route: 042
     Dates: start: 20090121, end: 20090506
  4. MEDROL [Concomitant]
     Indication: CROHN'S DISEASE

REACTIONS (1)
  - ADENOCARCINOMA [None]
